FAERS Safety Report 5297532-3 (Version None)
Quarter: 2007Q2

REPORT INFORMATION
  Report Type: 
  Country: None (occurrence: None)
  Receive Date: 20070416
  Receipt Date: 20070405
  Transmission Date: 20071010
  Serious: Yes (Hospitalization, Other)
  Sender: FDA-Public Use
  Company Number: 941012-005030341

PATIENT
  Age: 56 Year
  Sex: Female

DRUGS (8)
  1. HALDOL [Suspect]
     Indication: SCHIZOPHRENIA, PARANOID TYPE
     Route: 048
  2. DIAZEPAM [Suspect]
  3. DIAZEPAM [Suspect]
     Indication: DRUG USE FOR UNKNOWN INDICATION
  4. PROCYCLIDINE HYDROCHLORIDE 2MG TAB [Suspect]
  5. PROCYCLIDINE HYDROCHLORIDE 2MG TAB [Suspect]
     Indication: DRUG USE FOR UNKNOWN INDICATION
  6. FLUPENTHIXOL [Concomitant]
     Indication: CUTANEOUS LUPUS ERYTHEMATOSUS
  7. PREDNISOLONE [Concomitant]
  8. AZATHIOPRINE [Concomitant]

REACTIONS (5)
  - COGWHEEL RIGIDITY [None]
  - DYSPHAGIA [None]
  - HYPOKINESIA [None]
  - PARKINSONISM [None]
  - WEIGHT DECREASED [None]
